FAERS Safety Report 20692974 (Version 1)
Quarter: 2022Q2

REPORT INFORMATION
  Report Type: Spontaneous
  Country: US (occurrence: US)
  Receive Date: 20220410
  Receipt Date: 20220410
  Transmission Date: 20220721
  Serious: Yes (Life-Threatening)
  Sender: FDA-Public Use
  Company Number: US-NEBO-PC008250

PATIENT
  Age: 35 Year
  Sex: Female
  Weight: 73.9 kg

DRUGS (1)
  1. MONOFERRIC [Suspect]
     Active Substance: FERRIC DERISOMALTOSE
     Indication: Iron deficiency anaemia
     Route: 042
     Dates: start: 20211115, end: 20211115

REACTIONS (5)
  - Dyspnoea [Recovered/Resolved]
  - Flushing [Recovered/Resolved]
  - Abdominal pain lower [Recovered/Resolved]
  - Restlessness [Recovered/Resolved]
  - Crying [Recovered/Resolved]

NARRATIVE: CASE EVENT DATE: 20211115
